FAERS Safety Report 4333034-6 (Version None)
Quarter: 2004Q1

REPORT INFORMATION
  Report Type: 
  Country: None (occurrence: None)
  Receive Date: 20040330
  Receipt Date: 20040324
  Transmission Date: 20041129
  Serious: Yes (Death, Life-Threatening)
  Sender: FDA-Public Use
  Company Number: 2004205232EG

PATIENT
  Age: 71 Year
  Sex: Male

DRUGS (3)
  1. CAMPTOSAR [Suspect]
     Indication: SMALL CELL LUNG CANCER STAGE UNSPECIFIED
     Dosage: 100 MG, CYCLIC, IV
     Route: 042
     Dates: start: 20040303, end: 20040310
  2. CISPLATIN USP (CISPLATIN) SOLUTION, STERILE [Suspect]
     Indication: SMALL CELL LUNG CANCER STAGE UNSPECIFIED
     Dosage: CYCLIC
  3. INSULIN [Concomitant]

REACTIONS (7)
  - COMA [None]
  - DIARRHOEA [None]
  - GASTROINTESTINAL TOXICITY [None]
  - HAEMATEMESIS [None]
  - MELAENA [None]
  - MULTI-ORGAN FAILURE [None]
  - RENAL FAILURE [None]
